FAERS Safety Report 6747899-1 (Version None)
Quarter: 2010Q2

REPORT INFORMATION
  Report Type: 
  Country: None (occurrence: None)
  Receive Date: 20100528
  Receipt Date: 20100521
  Transmission Date: 20101027
  Serious: Yes (Death, Hospitalization)
  Sender: FDA-Public Use
  Company Number: JP-AMGEN-US404333

PATIENT
  Sex: Male
  Weight: 63 kg

DRUGS (13)
  1. ENBREL [Suspect]
     Indication: RHEUMATOID ARTHRITIS
     Dosage: LYOPHILIZED; 25 MG 1 X PER 1 WEEK
     Route: 058
     Dates: start: 20090731, end: 20090813
  2. ENBREL [Suspect]
     Dosage: SOLUTION FOR INJECTION; 25 MG 1 X PER 1 WEEK
     Route: 058
     Dates: start: 20090814, end: 20091115
  3. ENBREL [Suspect]
     Dosage: SOLUTION FOR INJECTION; 25 MG 1 X PER 1 WEEK
     Route: 058
     Dates: start: 20091204, end: 20100331
  4. PREDNISOLONE [Concomitant]
     Route: 048
  5. ALFAROL [Concomitant]
     Route: 048
  6. ISCOTIN [Concomitant]
     Route: 048
  7. PRORENAL [Concomitant]
     Route: 048
  8. FAMOTIDINE [Concomitant]
     Route: 048
  9. FOSAMAX [Concomitant]
     Route: 048
  10. URSO 250 [Concomitant]
     Route: 048
  11. PYDOXAL [Concomitant]
     Route: 048
  12. RIMATIL [Concomitant]
     Route: 048
  13. HARNAL [Concomitant]
     Route: 048

REACTIONS (3)
  - CONDITION AGGRAVATED [None]
  - INTERSTITIAL LUNG DISEASE [None]
  - VOLVULUS [None]
